FAERS Safety Report 11862997 (Version 1)
Quarter: 2015Q4

REPORT INFORMATION
  Report Type: Spontaneous
  Country: US (occurrence: None)
  Receive Date: 20151222
  Receipt Date: 20151222
  Transmission Date: 20160305
  Serious: Yes (Hospitalization, Disabling)
  Sender: FDA-Public Use
  Company Number: None

PATIENT
  Age: 29 Year
  Sex: Female
  Weight: 83.46 kg

DRUGS (3)
  1. CIPROFLOXACIN 500MG PLIVA HRVATSKA/KAISER [Suspect]
     Active Substance: CIPROFLOXACIN
     Indication: URINARY TRACT INFECTION
     Dosage: 500MG/1 PILL TWICE DAILY TAKEN BY MOUTH
     Route: 048
     Dates: start: 20151029, end: 20151029
  2. CIPROFLOXACIN 500MG PLIVA HRVATSKA/KAISER [Suspect]
     Active Substance: CIPROFLOXACIN
     Indication: KIDNEY INFECTION
     Dosage: 500MG/1 PILL TWICE DAILY TAKEN BY MOUTH
     Route: 048
     Dates: start: 20151029, end: 20151029
  3. NORA B BIRTH CONTROL [Concomitant]

REACTIONS (7)
  - Muscle spasms [None]
  - Pain in extremity [None]
  - Arthralgia [None]
  - Weight bearing difficulty [None]
  - Paraesthesia [None]
  - Anorgasmia [None]
  - Hypoaesthesia [None]

NARRATIVE: CASE EVENT DATE: 20151028
